FAERS Safety Report 8505736-9 (Version None)
Quarter: 2012Q3

REPORT INFORMATION
  Report Type: 
  Country: None (occurrence: None)
  Receive Date: 20120706
  Receipt Date: 20120706
  Transmission Date: 20120928
  Serious: Yes (Other)
  Sender: FDA-Public Use
  Company Number: None

PATIENT
  Age: 57 Year
  Sex: Female
  Weight: 87.0906 kg

DRUGS (1)
  1. TRAMADOL HCL [Suspect]
     Indication: ARTHRALGIA
     Dosage: 1 EVERY 6 HOURS
     Dates: start: 20120702, end: 20120702

REACTIONS (6)
  - FEELING ABNORMAL [None]
  - HYPERACUSIS [None]
  - HEADACHE [None]
  - PHOTOPHOBIA [None]
  - SOMNOLENCE [None]
  - DIZZINESS [None]
